FAERS Safety Report 4322221-9 (Version None)
Quarter: 2004Q1

REPORT INFORMATION
  Report Type: 
  Country: None (occurrence: None)
  Receive Date: 20040319
  Receipt Date: 20040309
  Transmission Date: 20041129
  Serious: Yes (Hospitalization)
  Sender: FDA-Public Use
  Company Number: 205023

PATIENT
  Age: 43 Year
  Sex: Female
  Weight: 54 kg

DRUGS (5)
  1. XOLAIR [Suspect]
     Indication: ASTHMA
     Dosage: 300 MG, SINGLE, SUBCUTANEOUS
     Route: 058
     Dates: start: 20040302, end: 20040302
  2. ADVAIR DISKUS [Concomitant]
  3. NASONEX [Concomitant]
  4. ASTELIN [Concomitant]
  5. MEDROL (METHYLREDNISOLONE) [Concomitant]

REACTIONS (1)
  - ANAPHYLACTIC REACTION [None]
